FAERS Safety Report 8816192 (Version 2)
Quarter: 2013Q2

REPORT INFORMATION
  Report Type: Spontaneous
  Country: US (occurrence: US)
  Receive Date: 20120929
  Receipt Date: 20130401
  Transmission Date: 20140414
  Serious: No
  Sender: FDA-Public Use
  Company Number: US-009507513-1209USA011026

PATIENT
  Age: 8 Year
  Sex: Female
  Weight: 21.77 kg

DRUGS (6)
  1. SINGULAIR [Suspect]
     Indication: ASTHMA
     Dosage: 5 MG, QD
     Route: 048
     Dates: start: 20110830, end: 20120710
  2. SINGULAIR [Suspect]
     Indication: RHINITIS ALLERGIC
  3. SINGULAIR [Suspect]
     Indication: COUGH
  4. SINGULAIR [Suspect]
     Indication: WHEEZING
  5. FLOVENT [Concomitant]
  6. CORTICOSTEROIDS (UNSPECIFIED) [Concomitant]

REACTIONS (8)
  - Confusional state [Not Recovered/Not Resolved]
  - Abnormal behaviour [Recovered/Resolved]
  - Amnesia [Recovering/Resolving]
  - Obsessive-compulsive disorder [Recovered/Resolved]
  - Anxiety [Recovered/Resolved]
  - Anxiety [Recovered/Resolved]
  - Disorientation [Recovering/Resolving]
  - Fatigue [Recovering/Resolving]
